FAERS Safety Report 4611420-4 (Version None)
Quarter: 2005Q1

REPORT INFORMATION
  Report Type: 
  Country: None (occurrence: None)
  Receive Date: 20050317
  Receipt Date: 20050228
  Transmission Date: 20050727
  Serious: Yes (Hospitalization)
  Sender: FDA-Public Use
  Company Number: PHBS2005BR03238

PATIENT
  Age: 39 Year
  Sex: Male
  Weight: 65 kg

DRUGS (5)
  1. DIOCOMB SI [Suspect]
     Indication: HYPERCHOLESTEROLAEMIA
     Dosage: 2 DF, UNK
     Route: 048
     Dates: start: 20050225, end: 20050226
  2. VIRILON [Concomitant]
     Dosage: 1 DF, QD
     Route: 048
  3. CARBOLITIUM [Concomitant]
     Dosage: 450 MG, BID
     Route: 048
  4. MELLERIL [Concomitant]
     Indication: MENTAL DISORDER
     Dosage: 50 MG, QD
     Route: 048
  5. OLCADIL [Concomitant]
     Indication: SLEEP DISORDER
     Dosage: 1 MG, QD

REACTIONS (5)
  - HYPERSENSITIVITY [None]
  - PRURITUS [None]
  - PYREXIA [None]
  - RASH PAPULAR [None]
  - SKIN INFLAMMATION [None]
